FAERS Safety Report 8071058 (Version 2)
Quarter: 2014Q1

REPORT INFORMATION
  Report Type: Spontaneous
  Country: US (occurrence: US)
  Receive Date: 20110805
  Receipt Date: 20140206
  Transmission Date: 20141002
  Serious: Yes (Hospitalization, Other)
  Sender: FDA-Public Use
  Company Number: US-BAYER-2011-067978

PATIENT
  Age: 35 Year
  Sex: Female

DRUGS (2)
  1. YAZ [Suspect]
     Dosage: UNK
     Dates: start: 200801, end: 200905
  2. FROVA [Concomitant]

REACTIONS (4)
  - Cholecystectomy [None]
  - Cholelithiasis [None]
  - Emotional distress [None]
  - Pain [None]
